FAERS Safety Report 7301031-4 (Version None)
Quarter: 2011Q1

REPORT INFORMATION
  Report Type: 
  Country: None (occurrence: None)
  Receive Date: 20110218
  Receipt Date: 20110209
  Transmission Date: 20110831
  Serious: Yes (Life-Threatening, Hospitalization)
  Sender: FDA-Public Use
  Company Number: FR-SANOFI-AVENTIS-2011SA008153

PATIENT
  Age: 74 Year
  Sex: Female

DRUGS (4)
  1. METFORMIN [Suspect]
     Route: 048
  2. LASIX [Suspect]
     Route: 048
  3. COAPROVEL [Suspect]
  4. DICLOFENAC SODIUM [Suspect]
     Route: 058

REACTIONS (3)
  - RENAL FAILURE ACUTE [None]
  - LACTIC ACIDOSIS [None]
  - HYPERKALAEMIA [None]
